FAERS Safety Report 15711078 (Version 1)
Quarter: 2018Q4

REPORT INFORMATION
  Report Type: Spontaneous
  Country: DE (occurrence: DE)
  Receive Date: 20181211
  Receipt Date: 20181211
  Transmission Date: 20190205
  Serious: Yes (Other)
  Sender: FDA-Public Use
  Company Number: DE-TEVA-2018-DE-984923

PATIENT
  Age: 40 Year
  Sex: Female

DRUGS (3)
  1. ESCITALOPRAM [Suspect]
     Active Substance: ESCITALOPRAM OXALATE
     Indication: PRODUCT USED FOR UNKNOWN INDICATION
     Route: 065
  2. CIPRALEX [Suspect]
     Active Substance: ESCITALOPRAM OXALATE
     Indication: ANXIETY
  3. CIPRALEX [Suspect]
     Active Substance: ESCITALOPRAM OXALATE
     Indication: DEPRESSION
     Dosage: STARTED WITH 1 DROP DAILY
     Route: 065
     Dates: start: 20150630, end: 20160322

REACTIONS (5)
  - Migraine [Unknown]
  - Optic nerve injury [Unknown]
  - Glaucoma [Not Recovered/Not Resolved]
  - Hypermetropia [Unknown]
  - Visual field defect [Unknown]

NARRATIVE: CASE EVENT DATE: 20160322
